FAERS Safety Report 6521199-7 (Version None)
Quarter: 2009Q4

REPORT INFORMATION
  Report Type: 
  Country: None (occurrence: None)
  Receive Date: 20091229
  Receipt Date: 20091223
  Transmission Date: 20100525
  Serious: Yes (Disabling)
  Sender: FDA-Public Use
  Company Number: US-BAYER-200943619NA

PATIENT
  Sex: Female

DRUGS (2)
  1. AVELOX [Suspect]
     Indication: DRUG USE FOR UNKNOWN INDICATION
     Dosage: 2 NIGHTS
  2. LEVOTHYROXINE SODIUM [Concomitant]

REACTIONS (4)
  - ABASIA [None]
  - MUSCULOSKELETAL DISCOMFORT [None]
  - PAIN [None]
  - STOMATITIS [None]
